FAERS Safety Report 20231433 (Version 3)
Quarter: 2022Q2

REPORT INFORMATION
  Report Type: Report from Study
  Country: CA (occurrence: CA)
  Receive Date: 20211227
  Receipt Date: 20220501
  Transmission Date: 20220721
  Serious: Yes (Hospitalization, Other)
  Sender: FDA-Public Use
  Company Number: CA-NOVARTISPH-NVSC2021CA294242

PATIENT
  Age: 50 Year
  Sex: Female

DRUGS (1)
  1. KISQALI [Suspect]
     Active Substance: RIBOCICLIB
     Indication: Breast cancer metastatic
     Dosage: 600 MG, DAILY FOR 21 DAYS, THEN STOP FOR 7 DAYS EACH CYCLE
     Route: 048
     Dates: start: 20211203

REACTIONS (3)
  - Full blood count decreased [Unknown]
  - Metastases to neck [Unknown]
  - Bone pain [Unknown]

NARRATIVE: CASE EVENT DATE: 20220425
